FAERS Safety Report 23463253 (Version 1)
Quarter: 2024Q1

REPORT INFORMATION
  Report Type: Spontaneous
  Country: BR (occurrence: BR)
  Receive Date: 20240131
  Receipt Date: 20240131
  Transmission Date: 20240409
  Serious: Yes (Hospitalization, Other)
  Sender: FDA-Public Use
  Company Number: BR-NOVOPROD-1128449

PATIENT
  Age: 29 Year
  Sex: Female
  Weight: 90 kg

DRUGS (2)
  1. OZEMPIC [Suspect]
     Active Substance: SEMAGLUTIDE
     Indication: Blood insulin abnormal
     Dosage: 0.25 MG, QW
     Dates: end: 2023
  2. OZEMPIC [Suspect]
     Active Substance: SEMAGLUTIDE
     Indication: Weight control
     Dosage: 0.25 MG, QW
     Dates: end: 2023

REACTIONS (10)
  - Migraine [Recovering/Resolving]
  - Surgery [Unknown]
  - Ectopic pregnancy [Unknown]
  - Pancreatitis acute [Recovering/Resolving]
  - Haemorrhagic cyst [Unknown]
  - Cardiovascular disorder [Recovering/Resolving]
  - Fluid retention [Recovering/Resolving]
  - Weight increased [Unknown]
  - Off label use [Recovered/Resolved]
  - Maternal exposure during pregnancy [Unknown]

NARRATIVE: CASE EVENT DATE: 20230601
